FAERS Safety Report 18721719 (Version 3)
Quarter: 2021Q1

REPORT INFORMATION
  Report Type: Spontaneous
  Country: US (occurrence: US)
  Receive Date: 20210110
  Receipt Date: 20210317
  Transmission Date: 20210419
  Serious: Yes (Life-Threatening, Other)
  Sender: FDA-Public Use
  Company Number: US-TEVA-2020-US-1865283

PATIENT
  Age: 32 Year
  Sex: Male

DRUGS (2)
  1. INFLIXIMAB [Suspect]
     Active Substance: INFLIXIMAB
     Indication: CROHN^S DISEASE
     Dosage: RECEIVED 2 DOSES
     Route: 065
  2. PREDNISONE. [Suspect]
     Active Substance: PREDNISONE
     Indication: CROHN^S DISEASE
     Dosage: 20MG
     Route: 065

REACTIONS (4)
  - Cytomegalovirus infection [Recovering/Resolving]
  - Human herpesvirus 8 infection [Unknown]
  - Proctitis [Recovering/Resolving]
  - Kaposi^s sarcoma [Recovering/Resolving]
